FAERS Safety Report 8546666-6 (Version None)
Quarter: 2012Q3

REPORT INFORMATION
  Report Type: 
  Country: None (occurrence: None)
  Receive Date: 20120727
  Receipt Date: 20120213
  Transmission Date: 20120928
  Serious: No
  Sender: FDA-Public Use
  Company Number: US-ASTRAZENECA-2012SE05037

PATIENT
  Age: 52 Year
  Sex: Female

DRUGS (2)
  1. SEROQUEL [Suspect]
     Indication: BIPOLAR DISORDER
     Route: 048
  2. SEROQUEL [Suspect]
     Route: 048

REACTIONS (19)
  - QUALITY OF LIFE DECREASED [None]
  - VOMITING [None]
  - DRY MOUTH [None]
  - DRUG DOSE OMISSION [None]
  - MANIA [None]
  - MENOPAUSE [None]
  - DISTURBANCE IN ATTENTION [None]
  - DECREASED APPETITE [None]
  - AGITATION [None]
  - SOMNOLENCE [None]
  - BIPOLAR DISORDER [None]
  - AGGRESSION [None]
  - INSOMNIA [None]
  - MALAISE [None]
  - ABDOMINAL DISCOMFORT [None]
  - OBSESSIVE-COMPULSIVE DISORDER [None]
  - ANXIETY [None]
  - THERAPEUTIC RESPONSE UNEXPECTED [None]
  - WRONG TECHNIQUE IN DRUG USAGE PROCESS [None]
